FAERS Safety Report 18874887 (Version 4)
Quarter: 2021Q2

REPORT INFORMATION
  Report Type: Spontaneous
  Country: US (occurrence: US)
  Receive Date: 20210210
  Receipt Date: 20210408
  Transmission Date: 20210717
  Serious: No
  Sender: FDA-Public Use
  Company Number: US-SA-2021SA042104

PATIENT
  Age: 58 Year
  Sex: Male

DRUGS (1)
  1. LANTUS [Suspect]
     Active Substance: INSULIN GLARGINE
     Dosage: UNK
     Route: 065
     Dates: start: 2011

REACTIONS (3)
  - Device leakage [Unknown]
  - Blood glucose increased [Unknown]
  - Device breakage [Unknown]

NARRATIVE: CASE EVENT DATE: 20210128
